FAERS Safety Report 9006049 (Version 1)
Quarter: 2013Q1

REPORT INFORMATION
  Report Type: Spontaneous
  Country: JP (occurrence: JP)
  Receive Date: 20130109
  Receipt Date: 20130109
  Transmission Date: 20140127
  Serious: Yes (Death, Other)
  Sender: FDA-Public Use
  Company Number: PHHY2013JP001628

PATIENT
  Age: 4 Year
  Sex: Male

DRUGS (2)
  1. CICLOSPORIN [Suspect]
     Indication: PROPHYLAXIS AGAINST GRAFT VERSUS HOST DISEASE
  2. CICLOSPORIN [Suspect]
     Indication: BONE MARROW TRANSPLANT

REACTIONS (3)
  - Acute myeloid leukaemia recurrent [Fatal]
  - Fatigue [Fatal]
  - Graft versus host disease [Unknown]
